FAERS Safety Report 6725840-5 (Version None)
Quarter: 2010Q2

REPORT INFORMATION
  Report Type: 
  Country: None (occurrence: None)
  Receive Date: 20100514
  Receipt Date: 20100504
  Transmission Date: 20101027
  Serious: Yes (Hospitalization)
  Sender: FDA-Public Use
  Company Number: PHHY2010CA28130

PATIENT
  Sex: Male
  Weight: 56.4 kg

DRUGS (14)
  1. ACLASTA [Suspect]
     Indication: OSTEOPOROSIS
     Dosage: 5 MG
     Route: 042
     Dates: start: 20100401
  2. SPIRIVA [Concomitant]
     Dosage: 18 ?G 1 INHALER DAILY
  3. CENTRUM [Concomitant]
     Indication: SHORT-BOWEL SYNDROME
     Dosage: 1 CO DAILY
  4. VITAMIN B-12 [Concomitant]
     Indication: SHORT-BOWEL SYNDROME
     Dosage: 100 ?G IM OF 30 JOULES
     Route: 030
  5. SANDOSTATIN LAR [Concomitant]
     Indication: DIARRHOEA
     Dosage: 20 MG OF 30 JOULES
  6. ZOLADEX [Concomitant]
     Indication: PROSTATE CANCER
     Dosage: 90 JOULES
     Route: 058
  7. LOMOTIL [Concomitant]
     Indication: DIARRHOEA
     Dosage: 5 MG/ ML LIQUID
  8. ARANESP [Concomitant]
     Indication: NEPHROGENIC ANAEMIA
     Dosage: 40 ?G OF 2 SEMAINES
  9. VITAMIN D [Concomitant]
     Dosage: 800 IU BID
  10. CALCIUM CARBONATE [Concomitant]
     Dosage: 1000 M, BID
  11. SYNTHROID [Concomitant]
     Indication: HYPOTHYROIDISM
     Dosage: 100 MCG
     Route: 048
  12. FERROUS SULFATE TAB [Concomitant]
     Indication: ANAEMIA
     Dosage: 300 MG
     Route: 048
  13. CASODEX [Concomitant]
     Indication: PROSTATE CANCER
     Dosage: 50 MG
     Route: 048
  14. IMODIUM [Concomitant]
     Indication: DIARRHOEA
     Dosage: 2 MG
     Route: 048

REACTIONS (6)
  - BLOOD PHOSPHORUS DECREASED [None]
  - HYPERKALAEMIA [None]
  - HYPOCALCAEMIA [None]
  - HYPOMAGNESAEMIA [None]
  - RENAL FAILURE CHRONIC [None]
  - SHORT-BOWEL SYNDROME [None]
